FAERS Safety Report 4626988-1 (Version None)
Quarter: 2005Q1

REPORT INFORMATION
  Report Type: 
  Country: None (occurrence: None)
  Receive Date: 20050331
  Receipt Date: 20050318
  Transmission Date: 20050727
  Serious: Yes (Hospitalization)
  Sender: FDA-Public Use
  Company Number: 213452

PATIENT
  Age: 34 Year
  Sex: Female
  Weight: 56.0192 kg

DRUGS (2)
  1. HERCEPTIN [Suspect]
     Indication: BREAST CANCER METASTATIC
     Dosage: 8MG/KG Q3W INTRAVENOUS
     Route: 042
     Dates: start: 20050307
  2. DOCETAXEL                       (DOCETAXEL) [Suspect]
     Indication: BREAST CANCER METASTATIC
     Dosage: 100 MG/M2 Q3W INTRAVENOUS
     Route: 042
     Dates: start: 20050307

REACTIONS (1)
  - FEBRILE NEUTROPENIA [None]
